FAERS Safety Report 12093280 (Version 1)
Quarter: 2016Q1

REPORT INFORMATION
  Report Type: Spontaneous
  Country: GB (occurrence: GB)
  Receive Date: 20160219
  Receipt Date: 20160219
  Transmission Date: 20160526
  Serious: Yes (Death)
  Sender: FDA-Public Use
  Company Number: GB-SA-2016SA031826

PATIENT
  Age: 22 Day
  Sex: Female
  Weight: 3.6 kg

DRUGS (12)
  1. THYMOGLOBULINE [Suspect]
     Active Substance: LAPINE T-LYMPHOCYTE IMMUNE GLOBULIN
     Indication: OMENN SYNDROME
     Route: 042
     Dates: start: 20160116, end: 20160117
  2. ACICLOVIR [Concomitant]
     Active Substance: ACYCLOVIR
  3. FLUCONAZOLE. [Concomitant]
     Active Substance: FLUCONAZOLE
  4. MORPHINE [Concomitant]
     Active Substance: MORPHINE
     Route: 048
  5. CHLORPHENAMINE [Concomitant]
     Active Substance: CHLORPHENIRAMINE MALEATE
  6. COTRIMOXAZOLE [Concomitant]
     Active Substance: SULFAMETHOXAZOLE\TRIMETHOPRIM
  7. EUMOVATE [Concomitant]
     Active Substance: CLOBETASONE BUTYRATE
  8. PHENOBARBITONE [Concomitant]
     Active Substance: PHENOBARBITAL
  9. TACROLIMUS. [Concomitant]
     Active Substance: TACROLIMUS
  10. PARACETAMOL [Concomitant]
     Active Substance: ACETAMINOPHEN
     Route: 048
  11. HYDROCORTISONE. [Concomitant]
     Active Substance: HYDROCORTISONE
     Dosage: 11MG BOLUS PRE ANTI-THYMOCYTE GLOBULIN AND 21MG WITH ANTI-THYMOCYTE GLOBULIN.
  12. PARAFFIN [Concomitant]
     Active Substance: PARAFFIN

REACTIONS (1)
  - Death [Fatal]

NARRATIVE: CASE EVENT DATE: 20160117
